FAERS Safety Report 9351342 (Version 2)
Quarter: 2013Q3

REPORT INFORMATION
  Report Type: Report from Study
  Country: US (occurrence: US)
  Receive Date: 20130617
  Receipt Date: 20130715
  Transmission Date: 20140515
  Serious: Yes (Hospitalization)
  Sender: FDA-Public Use
  Company Number: US-ALEXION PHARMACEUTICALS INC.-A201301356

PATIENT
  Age: 7 Year
  Sex: Female
  Weight: 20.2 kg

DRUGS (8)
  1. ECULIZUMAB [Suspect]
     Indication: HAEMOLYTIC URAEMIC SYNDROME
     Dosage: 6.70 MG, UNK
     Route: 042
     Dates: start: 20091130
  2. ECULIZUMAB [Suspect]
     Dosage: 300 MG, Q2W
     Route: 042
  3. TACROLIMUS [Concomitant]
     Dosage: 3.5 MG, BID
     Route: 048
  4. CELLCEPT [Concomitant]
     Dosage: 200 MG, BID
     Route: 048
  5. OMEPRAZOLE [Concomitant]
     Dosage: 20 MG, QD
  6. AMLODIPINE [Concomitant]
     Dosage: 2.5 MG, BID
     Route: 048
  7. ARANESP [Concomitant]
     Dosage: 20 MG, QW
     Route: 058
  8. CALCITRIOL [Concomitant]
     Dosage: 0.2 MCG QD
     Route: 048

REACTIONS (1)
  - Pneumonia mycoplasmal [Recovered/Resolved]
